FAERS Safety Report 17070246 (Version 3)
Quarter: 2020Q1

REPORT INFORMATION
  Report Type: Report from Study
  Country: US (occurrence: US)
  Receive Date: 20191125
  Receipt Date: 20200114
  Transmission Date: 20200409
  Serious: No
  Sender: FDA-Public Use
  Company Number: US-BEH-2019109799

PATIENT
  Age: 66 Year
  Sex: Female
  Weight: 90.7 kg

DRUGS (3)
  1. HAEGARDA [Suspect]
     Active Substance: HUMAN C1-ESTERASE INHIBITOR
     Indication: PROPHYLAXIS
     Dosage: 3000 6000 3 TO 4 DAYS, BIW
     Route: 058
     Dates: start: 20181015
  2. HAEGARDA [Suspect]
     Active Substance: HUMAN C1-ESTERASE INHIBITOR
     Indication: HEREDITARY ANGIOEDEMA
     Dosage: 3000 INTERNATIONAL UNIT, BIW
     Route: 058
     Dates: start: 20191120
  3. HAEGARDA [Suspect]
     Active Substance: HUMAN C1-ESTERASE INHIBITOR
     Dosage: UNK, TOT
     Route: 058
     Dates: start: 20191227, end: 20191227

REACTIONS (8)
  - Malaise [Unknown]
  - Oropharyngeal pain [Unknown]
  - Pain in extremity [Unknown]
  - Arthralgia [Unknown]
  - Nasopharyngitis [Unknown]
  - Nasopharyngitis [Unknown]
  - Asthenia [Unknown]
  - Arthralgia [Unknown]

NARRATIVE: CASE EVENT DATE: 2019
